FAERS Safety Report 8657655 (Version 3)
Quarter: 2012Q4

REPORT INFORMATION
  Report Type: 
  Country: ES (occurrence: ES)
  Receive Date: 20120710
  Receipt Date: 20121018
  Transmission Date: 20130627
  Serious: Yes (Life-Threatening, Hospitalization)
  Sender: FDA-Public Use
  Company Number: ES-JNJFOC-20120702294

PATIENT
  Age: 32 Year
  Sex: Female
  Weight: 65 kg

DRUGS (3)
  1. USTEKINUMAB [Suspect]
     Indication: DERMATITIS ATOPIC
     Route: 058
     Dates: start: 20120524, end: 20120524
  2. IMUREL [Suspect]
     Indication: DERMATITIS ATOPIC
     Route: 048
     Dates: start: 20120417, end: 20120603
  3. DACORTIN [Suspect]
     Indication: DERMATITIS ATOPIC
     Route: 048
     Dates: start: 20120417, end: 20120530

REACTIONS (4)
  - Sepsis [Recovered/Resolved]
  - Off label use [Recovered/Resolved]
  - Anuria [Recovered/Resolved]
  - Staphylococcus test positive [None]
